FAERS Safety Report 23617441 (Version 2)
Quarter: 2025Q2

REPORT INFORMATION
  Report Type: Spontaneous
  Country: FR (occurrence: FR)
  Receive Date: 20240311
  Receipt Date: 20250404
  Transmission Date: 20250717
  Serious: Yes (Hospitalization)
  Sender: TEVA
  Company Number: None

PATIENT
  Age: 72 Year
  Sex: Female
  Weight: 62 kg

DRUGS (3)
  1. EPIRUBICIN [Suspect]
     Active Substance: EPIRUBICIN
     Indication: Breast cancer
     Route: 042
     Dates: start: 199811, end: 199903
  2. ENHERTU [Suspect]
     Active Substance: FAM-TRASTUZUMAB DERUXTECAN-NXKI
     Indication: Breast cancer
     Dosage: C2 TO C5 DOSE REDUCTION 16% 300MG
     Route: 042
     Dates: start: 20230801, end: 20231003
  3. ENHERTU [Suspect]
     Active Substance: FAM-TRASTUZUMAB DERUXTECAN-NXKI
     Indication: Breast cancer
     Route: 042
     Dates: start: 20230711, end: 20230711

REACTIONS (1)
  - Ventricular dysfunction [Recovering/Resolving]

NARRATIVE: CASE EVENT DATE: 20231006
